FAERS Safety Report 4870927-5 (Version None)
Quarter: 2005Q4

REPORT INFORMATION
  Report Type: 
  Country: None (occurrence: None)
  Receive Date: 20051229
  Receipt Date: 20051216
  Transmission Date: 20060501
  Serious: Yes (Disabling)
  Sender: FDA-Public Use
  Company Number: 2005169944

PATIENT
  Age: 67 Year
  Sex: Male

DRUGS (4)
  1. DOXORUBICIN HCL [Suspect]
     Indication: MULTIPLE MYELOMA
     Dosage: 12 MG, INTRAVENOUS
     Route: 042
     Dates: start: 20051129, end: 20051202
  2. ONCOVIN [Suspect]
     Indication: MULTIPLE MYELOMA
     Dosage: 0.4 MG, INTRAVENOUS
     Route: 042
     Dates: start: 20051129, end: 20051202
  3. SULFAMETHOXAZOLE + TRIMETHOPRIM [Suspect]
     Indication: MULTIPLE MYELOMA
     Dosage: 2 GRAM, ORAL
     Route: 048
     Dates: start: 20051130, end: 20051202
  4. DECADRON [Concomitant]

REACTIONS (3)
  - ALANINE AMINOTRANSFERASE INCREASED [None]
  - ASPARTATE AMINOTRANSFERASE INCREASED [None]
  - LIVER DISORDER [None]
